FAERS Safety Report 17900353 (Version 6)
Quarter: 2023Q1

REPORT INFORMATION
  Report Type: Spontaneous
  Country: US (occurrence: US)
  Receive Date: 20200616
  Receipt Date: 20230315
  Transmission Date: 20230418
  Serious: No
  Sender: FDA-Public Use
  Company Number: US-PFIZER INC-2020233630

PATIENT
  Age: 66 Year
  Sex: Male

DRUGS (2)
  1. XELJANZ XR [Suspect]
     Active Substance: TOFACITINIB CITRATE
     Dosage: 11 MG (EVERY OTHER DAY)
  2. XELJANZ XR [Suspect]
     Active Substance: TOFACITINIB CITRATE
     Dosage: 11 MG, DAILY (IN THE MORNING)
     Route: 048

REACTIONS (6)
  - Intentional product misuse [Unknown]
  - Product dose omission issue [Unknown]
  - Pain [Unknown]
  - Joint stiffness [Unknown]
  - Dizziness [Unknown]
  - Tinea pedis [Unknown]
